FAERS Safety Report 10376160 (Version 1)
Quarter: 2014Q3

REPORT INFORMATION
  Report Type: Spontaneous
  Country: US (occurrence: US)
  Receive Date: 20140811
  Receipt Date: 20140811
  Transmission Date: 20150326
  Serious: No
  Sender: FDA-Public Use
  Company Number: US-ASTRAZENECA-2014SE13674

PATIENT
  Age: 59 Year
  Sex: Female
  Weight: 81.2 kg

DRUGS (4)
  1. VITAMIN D [Concomitant]
     Active Substance: CHOLECALCIFEROL
     Indication: VITAMIN D DECREASED
     Route: 048
     Dates: start: 201402
  2. ANASTRAZOLE [Suspect]
     Active Substance: ANASTROZOLE
     Indication: OESTROGEN RECEPTOR ASSAY POSITIVE
     Route: 048
     Dates: start: 201302
  3. VITAMIN B12 [Concomitant]
     Active Substance: CYANOCOBALAMIN
     Dosage: 1000 MCG DAILY
     Route: 048
     Dates: start: 201402
  4. MAGNESIUM [Concomitant]
     Active Substance: MAGNESIUM
     Dosage: UNKNOWN DAILY
     Route: 061
     Dates: start: 201402

REACTIONS (7)
  - Paraesthesia [Not Recovered/Not Resolved]
  - Vitamin D abnormal [Unknown]
  - Hypoaesthesia [Not Recovered/Not Resolved]
  - Blood parathyroid hormone increased [Unknown]
  - Bone pain [Not Recovered/Not Resolved]
  - Lymphocyte morphology abnormal [Unknown]
  - Hypercalcaemia [Unknown]

NARRATIVE: CASE EVENT DATE: 201401
